FAERS Safety Report 18356010 (Version 2)
Quarter: 2020Q4

REPORT INFORMATION
  Report Type: Report from Study
  Country: CA (occurrence: CA)
  Receive Date: 20201007
  Receipt Date: 20201023
  Transmission Date: 20210114
  Serious: Yes (Other)
  Sender: FDA-Public Use
  Company Number: CA-BAUSCH-BL-2019-061224

PATIENT
  Age: 52 Year
  Sex: Female
  Weight: 100 kg

DRUGS (2)
  1. SILIQ [Suspect]
     Active Substance: BRODALUMAB
     Indication: PSORIASIS
     Dosage: 210MG/ 1.5 ML AT WEEK 0,1 AND 2
     Route: 058
     Dates: start: 20190913, end: 201909
  2. SILIQ [Suspect]
     Active Substance: BRODALUMAB
     Dosage: 210MG/ 1.5 ML
     Route: 058
     Dates: start: 201910

REACTIONS (9)
  - Fatigue [Unknown]
  - Disease recurrence [Not Recovered/Not Resolved]
  - Road traffic accident [Unknown]
  - Psoriasis [Not Recovered/Not Resolved]
  - Malaise [Unknown]
  - Stress [Not Recovered/Not Resolved]
  - Blood pressure increased [Unknown]
  - Erythema [Unknown]
  - Drug ineffective [Unknown]

NARRATIVE: CASE EVENT DATE: 2019
